FAERS Safety Report 10342183 (Version 2)
Quarter: 2014Q3

REPORT INFORMATION
  Report Type: Spontaneous
  Country: US (occurrence: US)
  Receive Date: 20140725
  Receipt Date: 20140731
  Transmission Date: 20150326
  Serious: No
  Sender: FDA-Public Use
  Company Number: US-PFIZER INC-2014204839

PATIENT

DRUGS (5)
  1. LISINOPRIL. [Interacting]
     Active Substance: LISINOPRIL
     Dosage: UNK
  2. LEVEMIR [Interacting]
     Active Substance: INSULIN DETEMIR
     Dosage: UNK
  3. METFORMIN HCL [Interacting]
     Active Substance: METFORMIN HYDROCHLORIDE
     Dosage: UNK
  4. ATORVASTATIN CALCIUM. [Suspect]
     Active Substance: ATORVASTATIN CALCIUM
     Dosage: UNK
  5. VICTOZA [Interacting]
     Active Substance: LIRAGLUTIDE
     Dosage: UNK

REACTIONS (2)
  - Drug interaction [Unknown]
  - Blood glucose fluctuation [Unknown]
